FAERS Safety Report 7274788-9 (Version None)
Quarter: 2011Q1

REPORT INFORMATION
  Report Type: 
  Country: None (occurrence: None)
  Receive Date: 20110202
  Receipt Date: 20110202
  Transmission Date: 20110831
  Serious: No
  Sender: FDA-Public Use
  Company Number: None

PATIENT
  Age: 58 Year
  Sex: Female
  Weight: 41.2773 kg

DRUGS (1)
  1. PANTOPRAZOLE [Suspect]
     Dosage: 40MG 1 PO QD
     Route: 048

REACTIONS (4)
  - DIARRHOEA [None]
  - PRODUCT SUBSTITUTION ISSUE [None]
  - NAUSEA [None]
  - VOMITING [None]
